FAERS Safety Report 10463412 (Version 2)
Quarter: 2014Q4

REPORT INFORMATION
  Report Type: Spontaneous
  Country: US (occurrence: None)
  Receive Date: 20140917
  Receipt Date: 20141016
  Transmission Date: 20150528
  Serious: Yes (Other)
  Sender: FDA-Public Use
  Company Number: 2013-US-000251

PATIENT
  Age: 24 Year
  Sex: Male
  Weight: 66.2 kg

DRUGS (4)
  1. ALLERGY MEDICATION [Concomitant]
     Active Substance: DIPHENHYDRAMINE HYDROCHLORIDE
  2. XYREM [Suspect]
     Active Substance: SODIUM OXYBATE
     Indication: NARCOLEPSY
     Route: 048
     Dates: start: 201306, end: 201307
  3. ALEVE (NAPROXEN SODIUM) [Concomitant]
  4. NUVIGIL [Concomitant]
     Active Substance: ARMODAFINIL

REACTIONS (6)
  - Condition aggravated [None]
  - Nausea [None]
  - Weight decreased [None]
  - Dehydration [None]
  - Ehlers-Danlos syndrome [None]
  - Decreased appetite [None]

NARRATIVE: CASE EVENT DATE: 201306
